FAERS Safety Report 8547266-4 (Version None)
Quarter: 2012Q3

REPORT INFORMATION
  Report Type: 
  Country: None (occurrence: None)
  Receive Date: 20120727
  Receipt Date: 20120724
  Transmission Date: 20120928
  Serious: Yes (Life-Threatening, Other)
  Sender: FDA-Public Use
  Company Number: CHPA2012US015596

PATIENT
  Age: 62 Year
  Sex: Male

DRUGS (1)
  1. PREVACID 24 HR [Suspect]
     Indication: ABDOMINAL PAIN UPPER
     Dosage: 15 MG, QD
     Route: 048

REACTIONS (8)
  - WITHDRAWAL SYNDROME [None]
  - THERAPEUTIC RESPONSE UNEXPECTED [None]
  - FEELING ABNORMAL [None]
  - INCORRECT DRUG ADMINISTRATION DURATION [None]
  - OFF LABEL USE [None]
  - ABDOMINAL PAIN UPPER [None]
  - DRUG DEPENDENCE [None]
  - DISEASE RECURRENCE [None]
